FAERS Safety Report 20818856 (Version 4)
Quarter: 2023Q1

REPORT INFORMATION
  Report Type: Spontaneous
  Country: US (occurrence: US)
  Receive Date: 20220512
  Receipt Date: 20230309
  Transmission Date: 20230417
  Serious: No
  Sender: FDA-Public Use
  Company Number: US-PFIZER INC-202200570173

PATIENT
  Age: 56 Year
  Sex: Female

DRUGS (2)
  1. IBRANCE [Suspect]
     Active Substance: PALBOCICLIB
     Dosage: UNK
  2. OMEPRAZOLE [Concomitant]
     Active Substance: OMEPRAZOLE

REACTIONS (11)
  - White blood cell count decreased [Unknown]
  - Fatigue [Unknown]
  - Blood pressure decreased [Unknown]
  - Headache [Unknown]
  - Dizziness [Unknown]
  - Diarrhoea [Unknown]
  - Constipation [Unknown]
  - Nausea [Unknown]
  - Insomnia [Unknown]
  - Arthralgia [Unknown]
  - Full blood count decreased [Unknown]
